FAERS Safety Report 14051487 (Version 3)
Quarter: 2019Q1

REPORT INFORMATION
  Report Type: Spontaneous
  Country: FR (occurrence: FR)
  Receive Date: 20171006
  Receipt Date: 20190111
  Transmission Date: 20190417
  Serious: Yes (Other)
  Sender: FDA-Public Use
  Company Number: FR-MERCK KGAA-2028977

PATIENT
  Age: 47 Year
  Sex: Female

DRUGS (2)
  1. EUTHYROX [Suspect]
     Active Substance: LEVOTHYROXINE SODIUM
     Route: 048
     Dates: end: 20170922
  2. EUTHYROX [Suspect]
     Active Substance: LEVOTHYROXINE SODIUM
     Indication: POST PROCEDURAL HYPOTHYROIDISM
     Route: 048
     Dates: start: 201704, end: 20170922

REACTIONS (20)
  - Blood thyroid stimulating hormone increased [Recovered/Resolved]
  - Hyperthyroidism [Recovering/Resolving]
  - Irritability [Recovered/Resolved]
  - Back pain [Recovered/Resolved]
  - Anxiety [Recovered/Resolved]
  - Nausea [Recovered/Resolved]
  - Self esteem decreased [Recovered/Resolved]
  - Alopecia [Recovering/Resolving]
  - Disturbance in attention [Recovered/Resolved]
  - Muscle contracture [Recovered/Resolved]
  - Abdominal pain upper [None]
  - Fatigue [Recovering/Resolving]
  - Diarrhoea [Recovered/Resolved]
  - Asthenia [Recovered/Resolved]
  - Vertigo [Recovered/Resolved]
  - Neck pain [Recovered/Resolved]
  - Paraesthesia [None]
  - Dry mouth [None]
  - Headache [Recovering/Resolving]
  - Weight decreased [Recovered/Resolved]

NARRATIVE: CASE EVENT DATE: 2017
